FAERS Safety Report 9361362 (Version 1)
Quarter: 2013Q2

REPORT INFORMATION
  Report Type: Spontaneous
  Country: US (occurrence: US)
  Receive Date: 20130621
  Receipt Date: 20130621
  Transmission Date: 20140414
  Serious: Yes (Other)
  Sender: FDA-Public Use
  Company Number: US-PFIZER INC-2013185550

PATIENT
  Age: 80 Year
  Sex: Female

DRUGS (20)
  1. NORVASC [Suspect]
     Dosage: 5 MG, DAILY
  2. LIPITOR [Suspect]
     Dosage: 80 MG, DAILY
  3. WARFARIN [Concomitant]
     Dosage: 5 MG, (TAKE AS DIRECTED)
  4. DORZOLAMIDE HYDROCHLORIDE/TIMOLOL MALEATE [Concomitant]
     Dosage: 2 GTT, 2X/DAY
     Route: 047
  5. ENALAPRIL [Concomitant]
     Dosage: 20 MG, DAILY
  6. VERAPAMIL [Concomitant]
     Dosage: 80 MG, 2X/DAY
  7. VERAPAMIL [Concomitant]
     Dosage: 80 MG, 3X/DAY
  8. KLOR-CON [Concomitant]
     Dosage: 20 MG, 2X/DAY
  9. PACERONE [Concomitant]
     Dosage: 100 MG, 2X/DAY (200 MG TAB, USE AS DIRECTED, 1/2 TWICE DAILY)
  10. FUROSEMIDE [Concomitant]
     Dosage: 40 MG, DAILY
  11. HYDROCO/APAP [Concomitant]
     Dosage: 2 DF, 1X/DAY (5-500 MG TAB, 2 TAB DAILY)
  12. PROPO-N/APAP [Concomitant]
     Dosage: 2 DF, 1X/DAY (100-650 MG TAB, 2 TAB DAILY)
  13. LOSARTAN [Concomitant]
     Dosage: 25 MG, 2X/DAY
  14. AMBIEN [Concomitant]
     Dosage: 10 MG, AS NEEDED (1 TAB BEDTIME)
  15. LEVOTHYROXINE [Concomitant]
     Dosage: 50 MG, 1X/DAY
  16. BEPREVE [Concomitant]
     Dosage: 2 GTT, AS NEEDED
  17. PERI-COLACE [Concomitant]
     Dosage: UNK, (2 IF NEEDED 2 X DAY)
  18. CITRACAL [Concomitant]
     Dosage: UNK, 2X/DAY (250 MG+ D, 1 TAB)
  19. VITAMIN C [Concomitant]
     Dosage: 1000 MG, 1X/DAY (DAILY)
  20. GLYCOLAX [Concomitant]
     Dosage: UNK

REACTIONS (1)
  - Glaucoma [Unknown]
